FAERS Safety Report 11025864 (Version 1)
Quarter: 2015Q2

REPORT INFORMATION
  Report Type: Spontaneous
  Country: US (occurrence: None)
  Receive Date: 20150413
  Receipt Date: 20150413
  Transmission Date: 20150821
  Serious: Yes (Disabling)
  Sender: FDA-Public Use
  Company Number: None

PATIENT
  Age: 70 Year
  Sex: Female
  Weight: 75.75 kg

DRUGS (11)
  1. AMLODIPINE [Concomitant]
     Active Substance: AMLODIPINE BESYLATE
  2. HYDROEODONE [Concomitant]
  3. CENTRUM A TO ZINC VITAMINS [Concomitant]
  4. ALEVES [Concomitant]
  5. ASPIRIN. [Concomitant]
     Active Substance: ASPIRIN
  6. CIPROFLOXACN [Suspect]
     Active Substance: CIPROFLOXACIN
     Indication: CYSTITIS
     Dosage: 500 MG, 6 PILLS, 2X DAY, BY MOUTH
     Route: 048
     Dates: start: 20150319, end: 20150321
  7. ATENOLOL. [Concomitant]
     Active Substance: ATENOLOL
  8. VIT D2??? [Concomitant]
  9. ESTRADIOL. [Concomitant]
     Active Substance: ESTRADIOL
  10. ZYRTEC [Concomitant]
     Active Substance: CETIRIZINE HYDROCHLORIDE
  11. PEPCID COMPLETE [Concomitant]
     Active Substance: CALCIUM CARBONATE\FAMOTIDINE\MAGNESIUM HYDROXIDE

REACTIONS (3)
  - Neuropathy peripheral [None]
  - Product quality issue [None]
  - Condition aggravated [None]

NARRATIVE: CASE EVENT DATE: 20150319
